FAERS Safety Report 6062684-4 (Version None)
Quarter: 2009Q1

REPORT INFORMATION
  Report Type: 
  Country: None (occurrence: None)
  Receive Date: 20090129
  Receipt Date: 20090119
  Transmission Date: 20090719
  Serious: Yes (Other)
  Sender: FDA-Public Use
  Company Number: 1000003196

PATIENT
  Age: 63 Year
  Sex: Female
  Weight: 80 kg

DRUGS (3)
  1. MONUROL [Suspect]
     Dosage: (2 GM,ONCE),ORAL
     Route: 048
     Dates: start: 20081029, end: 20081029
  2. FLUIDASA(CAPSULES) [Suspect]
     Dosage: (ONCE),ORAL
     Route: 048
     Dates: start: 20081029, end: 20081029
  3. VACUNA ANTIGRIPAL PASTEUR (0.5 MILLILITRE(S)) [Suspect]
     Indication: IMMUNISATION
     Dosage: 0.5 ML (0.5 ML,ONCE),INTRAMUSCULAR
     Route: 030
     Dates: start: 20081029, end: 20081029

REACTIONS (5)
  - LOSS OF CONSCIOUSNESS [None]
  - NAUSEA [None]
  - PRURITUS GENERALISED [None]
  - SWELLING [None]
  - URTICARIA [None]
